FAERS Safety Report 24722620 (Version 1)
Quarter: 2024Q4

REPORT INFORMATION
  Report Type: Spontaneous
  Country: JP (occurrence: JP)
  Receive Date: 20241211
  Receipt Date: 20241211
  Transmission Date: 20250115
  Serious: Yes (Other)
  Sender: GUERBET
  Company Number: JP-GUERBETG_JAPAN-JP-20240180

PATIENT
  Age: 63 Year
  Sex: Male

DRUGS (3)
  1. LIPIODOL [Suspect]
     Active Substance: ETHIODIZED OIL
     Indication: Therapeutic embolisation
     Dosage: MIXTURE OF 0.3 ML OF NBCA AND LIPIODOL AT RATIO OF 1:8
     Route: 013
  2. UNSPECIFIED INGREDIENT [Suspect]
     Active Substance: UNSPECIFIED INGREDIENT
     Indication: Therapeutic embolisation
     Dosage: MIXTURE OF 0.3 ML OF NBCA AND LIPIODOL AT RATIO OF 1:8
     Route: 013
  3. DEXTROSE [Concomitant]
     Active Substance: DEXTROSE MONOHYDRATE
     Indication: Therapeutic embolisation
     Route: 013

REACTIONS (4)
  - Ileal stenosis [Recovered/Resolved]
  - Ischaemic enteritis [Recovered/Resolved]
  - Flank pain [Recovered/Resolved]
  - Device dislocation [Recovered/Resolved]
